FAERS Safety Report 20184654 (Version 1)
Quarter: 2021Q4

REPORT INFORMATION
  Report Type: Spontaneous
  Country: US (occurrence: US)
  Receive Date: 20211214
  Receipt Date: 20211214
  Transmission Date: 20220303
  Serious: No
  Sender: FDA-Public Use
  Company Number: US-JNJFOC-20211200229

PATIENT
  Age: 18 Year
  Sex: Male

DRUGS (2)
  1. INVEGA [Suspect]
     Active Substance: PALIPERIDONE
     Indication: Schizoaffective disorder
     Route: 048
  2. INVEGA [Suspect]
     Active Substance: PALIPERIDONE
     Indication: Bipolar disorder

REACTIONS (4)
  - Product dose omission issue [Unknown]
  - Behaviour disorder [Unknown]
  - Weight increased [Unknown]
  - Memory impairment [Unknown]
